FAERS Safety Report 24661958 (Version 1)
Quarter: 2024Q4

REPORT INFORMATION
  Report Type: Spontaneous
  Country: EG (occurrence: EG)
  Receive Date: 20241125
  Receipt Date: 20241125
  Transmission Date: 20250115
  Serious: Yes (Death, Hospitalization, Other)
  Sender: TAKEDA
  Company Number: EG-TAKEDA-2024TUS109295

PATIENT
  Age: 13 Year
  Sex: Male
  Weight: 23.5 kg

DRUGS (1)
  1. ELAPRASE [Suspect]
     Active Substance: IDURSULFASE
     Indication: Mucopolysaccharidosis II
     Dosage: UNK, Q2WEEKS
     Dates: start: 20191004, end: 20240822

REACTIONS (13)
  - Cardiac arrest [Fatal]
  - Pneumonia [Fatal]
  - Ejection fraction decreased [Fatal]
  - Carditis [Fatal]
  - Respiratory distress [Unknown]
  - Altered state of consciousness [Unknown]
  - Cardiomegaly [Unknown]
  - Left ventricular hypertrophy [Unknown]
  - Blood creatine phosphokinase increased [Unknown]
  - Troponin increased [Unknown]
  - Troponin I increased [Unknown]
  - Blood creatine phosphokinase MB increased [Unknown]
  - Tachycardia [Unknown]

NARRATIVE: CASE EVENT DATE: 20240829
